FAERS Safety Report 7230806-5 (Version None)
Quarter: 2011Q1

REPORT INFORMATION
  Report Type: 
  Country: None (occurrence: None)
  Receive Date: 20110107
  Receipt Date: 20101228
  Transmission Date: 20110831
  Serious: Yes (Hospitalization)
  Sender: FDA-Public Use
  Company Number: 1000017994

PATIENT
  Age: 89 Year
  Sex: Female

DRUGS (11)
  1. EUPRESSYL (URAPIDIL) (60 MILLIGRAM, CAPSULES) [Suspect]
     Dosage: 120 MG (120 MG,1 IN1 D), ORAL
     Route: 048
  2. CORDARONE [Concomitant]
  3. IMOVANE (ZOPICLONE) [Suspect]
     Dosage: ORAL
     Route: 048
     Dates: start: 20070101
  4. ACTONEL [Suspect]
     Dosage: 5 MG (35 MG,1 IN 1 WK), ORAL
     Route: 048
     Dates: start: 20070101
  5. LASILIX (FUROSEMIDE) (40 MILLIGRAM, TABLETS) [Suspect]
     Dosage: 80 MG (80 MG,1 IN1 D)
     Dates: start: 20070101
  6. ATARAX (HYDROXYZINE) (25 MILLIGRAM) (HYDROXYZINE) [Concomitant]
  7. SINTROM [Suspect]
     Dosage: ORAL
     Route: 048
     Dates: start: 20000620, end: 20100610
  8. DOLIPRANE (PARACETAMOL) (PARACETAMOL) [Concomitant]
  9. EUPANTOL (PANTOPRAZOLE SODIUM) (20 MILLIGRAM) (PANTOPRAZOLE SODIUM) [Concomitant]
  10. LERCAN (LERCANIDIPINE HYDROCHLORIDE) (20 MILLIGRAM, TABLETS) [Suspect]
     Dosage: ORAL
     Route: 048
     Dates: start: 20070101
  11. CITALOPRAM (CITALOPRAM HYDROBROMIDE) (20 MILLIGRAM, TABLETS) [Suspect]
     Dosage: 10 MG (10 MG,1 IN 1 D), ORAL
     Route: 048
     Dates: start: 20070101

REACTIONS (6)
  - HAEMATOMA [None]
  - HAEMOGLOBIN DECREASED [None]
  - FALL [None]
  - CLUMSINESS [None]
  - ANAEMIA MACROCYTIC [None]
  - INTERNATIONAL NORMALISED RATIO INCREASED [None]
